FAERS Safety Report 6049417-2 (Version None)
Quarter: 2009Q1

REPORT INFORMATION
  Report Type: 
  Country: None (occurrence: None)
  Receive Date: 20090123
  Receipt Date: 20090116
  Transmission Date: 20090719
  Serious: Yes (Hospitalization)
  Sender: FDA-Public Use
  Company Number: US-GILEAD-2009-0019895

PATIENT
  Age: 33 Year
  Sex: Male

DRUGS (1)
  1. VIREAD [Suspect]
     Indication: HIV INFECTION

REACTIONS (4)
  - BLOOD CREATININE INCREASED [None]
  - CHILLS [None]
  - MALAISE [None]
  - PYREXIA [None]
